FAERS Safety Report 9455261 (Version 1)
Quarter: 2013Q3

REPORT INFORMATION
  Report Type: Spontaneous
  Country: US (occurrence: US)
  Receive Date: 20130813
  Receipt Date: 20130813
  Transmission Date: 20140515
  Serious: No
  Sender: FDA-Public Use
  Company Number: US-JNJFOC-20130801383

PATIENT
  Age: 65 Year
  Sex: Female

DRUGS (8)
  1. SANDOZ FENTANYL TRANSDERMAL SYSTEM [Suspect]
     Indication: BACK PAIN
     Route: 062
     Dates: start: 201305
  2. SANDOZ FENTANYL TRANSDERMAL SYSTEM [Suspect]
     Indication: NECK PAIN
     Route: 062
     Dates: start: 201305
  3. HYDROCODONE [Concomitant]
     Indication: PROCEDURAL PAIN
     Route: 048
  4. HYDROCODONE [Concomitant]
     Indication: PROCEDURAL PAIN
     Route: 048
     Dates: start: 2013, end: 2013
  5. HYDROCODONE [Concomitant]
     Indication: BACK PAIN
     Route: 048
  6. HYDROCODONE [Concomitant]
     Indication: BACK PAIN
     Route: 048
     Dates: start: 2013, end: 2013
  7. HYDROCODONE [Concomitant]
     Indication: NECK PAIN
     Route: 048
     Dates: start: 2013, end: 2013
  8. HYDROCODONE [Concomitant]
     Indication: NECK PAIN
     Route: 048

REACTIONS (9)
  - Therapeutic response decreased [Not Recovered/Not Resolved]
  - Wrong technique in drug usage process [Not Recovered/Not Resolved]
  - Poor quality drug administered [Unknown]
  - Wrong technique in drug usage process [Unknown]
  - Product packaging issue [Unknown]
  - Product quality issue [Unknown]
  - Wrong technique in drug usage process [Not Recovered/Not Resolved]
  - Product quality issue [Not Recovered/Not Resolved]
  - Insomnia [Recovered/Resolved]
